FAERS Safety Report 13946312 (Version 1)
Quarter: 2017Q3

REPORT INFORMATION
  Report Type: Report from Study
  Country: US (occurrence: US)
  Receive Date: 20170907
  Receipt Date: 20170907
  Transmission Date: 20171128
  Serious: Yes (Other)
  Sender: FDA-Public Use
  Company Number: US-ACTELION-A-US2017-158912

PATIENT
  Age: 36 Year
  Sex: Female

DRUGS (1)
  1. UPTRAVI [Suspect]
     Active Substance: SELEXIPAG
     Indication: PULMONARY ARTERIAL HYPERTENSION
     Dosage: 800 MCG, BID
     Route: 048
     Dates: start: 20161230

REACTIONS (6)
  - Dizziness [Unknown]
  - Dyspnoea [Unknown]
  - Cardiac disorder [Unknown]
  - Oedema peripheral [Unknown]
  - Oedema [Unknown]
  - Lung disorder [Unknown]
